FAERS Safety Report 6430012-8 (Version None)
Quarter: 2009Q4

REPORT INFORMATION
  Report Type: 
  Country: None (occurrence: None)
  Receive Date: 20091106
  Receipt Date: 20091102
  Transmission Date: 20100525
  Serious: Yes (Life-Threatening)
  Sender: FDA-Public Use
  Company Number: NZ-ASTRAZENECA-2009SE23565

PATIENT
  Age: 11874 Day
  Sex: Female

DRUGS (5)
  1. PROPOFOL [Suspect]
     Route: 042
     Dates: start: 20040903, end: 20040903
  2. FENTANYL-100 [Suspect]
     Route: 042
     Dates: start: 20040903, end: 20040903
  3. AMOXICILLIN AND CLAVULANATE POTASSIUM [Suspect]
     Route: 042
     Dates: start: 20040903, end: 20040903
  4. ROCURONIUM BROMIDE [Suspect]
     Route: 042
     Dates: start: 20040903, end: 20040903
  5. ONDANSETRON HYDROCHLORIDE [Suspect]
     Route: 042
     Dates: start: 20040903, end: 20040903

REACTIONS (5)
  - ABDOMINAL PAIN [None]
  - BRONCHOSPASM [None]
  - MYALGIA [None]
  - PRURITUS [None]
  - RASH [None]
